FAERS Safety Report 23644211 (Version 1)
Quarter: 2024Q1

REPORT INFORMATION
  Report Type: Spontaneous
  Country: US (occurrence: None)
  Receive Date: 20240318
  Receipt Date: 20240318
  Transmission Date: 20240409
  Serious: Yes (Hospitalization)
  Sender: FDA-Public Use
  Company Number: None

PATIENT

DRUGS (4)
  1. OTEZLA [Suspect]
     Active Substance: APREMILAST
     Indication: Psoriasis
     Dosage: FREQUENCY : TWICE A DAY;?
     Route: 048
     Dates: start: 201711
  2. TYVASO [Concomitant]
     Active Substance: TREPROSTINIL
  3. TADALAFIL [Concomitant]
  4. OPSUMIT [Concomitant]

REACTIONS (2)
  - Anaemia [None]
  - Nasopharyngitis [None]
